FAERS Safety Report 17421074 (Version 1)
Quarter: 2020Q1

REPORT INFORMATION
  Report Type: Spontaneous
  Country: ES (occurrence: ES)
  Receive Date: 20200214
  Receipt Date: 20200214
  Transmission Date: 20200409
  Serious: Yes (Other)
  Sender: FDA-Public Use
  Company Number: ES-GLAXOSMITHKLINE-ES2020GSK023216

PATIENT
  Age: 46 Year
  Sex: Male

DRUGS (4)
  1. FLUTICASONE FUROATE + VILANTEROL TRIFENATATE [Suspect]
     Active Substance: FLUTICASONE FUROATE\VILANTEROL TRIFENATATE
     Indication: ASTHMA
     Dosage: UNK, 184/22 MCG
     Route: 055
  2. MONTELUKAST [Concomitant]
     Active Substance: MONTELUKAST SODIUM
     Indication: ASTHMA
     Dosage: 10 MG
  3. COBICISTAT [Interacting]
     Active Substance: COBICISTAT
     Indication: HIV INFECTION
     Dosage: UNK
     Dates: start: 2018
  4. TIOTROPIUM [Concomitant]
     Active Substance: TIOTROPIUM
     Indication: ASTHMA
     Dosage: 2.5 UG

REACTIONS (16)
  - Cushing^s syndrome [Recovered/Resolved]
  - Cushingoid [Recovered/Resolved]
  - Oedema [Recovered/Resolved]
  - Paraesthesia [Recovered/Resolved]
  - Cortisol decreased [Recovered/Resolved]
  - Muscular weakness [Recovered/Resolved]
  - Oedema peripheral [Recovered/Resolved]
  - Arthralgia [Recovered/Resolved]
  - Lipohypertrophy [Recovered/Resolved]
  - Sensory loss [Recovered/Resolved]
  - Skin exfoliation [Recovered/Resolved]
  - Musculoskeletal stiffness [Recovered/Resolved]
  - Fat tissue increased [Recovered/Resolved]
  - Hypertension [Recovered/Resolved]
  - Skin striae [Unknown]
  - Drug interaction [Unknown]
